FAERS Safety Report 23425901 (Version 4)
Quarter: 2024Q3

REPORT INFORMATION
  Report Type: Report from Study
  Country: US (occurrence: US)
  Receive Date: 20240122
  Receipt Date: 20240821
  Transmission Date: 20241016
  Serious: Yes (Hospitalization, Other)
  Sender: AMGEN
  Company Number: US-HORIZON THERAPEUTICS-HZN-2023-007912

PATIENT
  Age: 31 Year
  Sex: Female

DRUGS (2)
  1. PROCYSBI [Suspect]
     Active Substance: CYSTEAMINE BITARTRATE
     Indication: Cystinosis
     Dosage: 475 MG, BID
     Route: 048
     Dates: start: 20221129
  2. PROCYSBI [Suspect]
     Active Substance: CYSTEAMINE BITARTRATE
     Dosage: UNK
     Route: 065

REACTIONS (12)
  - Arteriovenous fistula thrombosis [Unknown]
  - Feeling abnormal [Recovering/Resolving]
  - Decreased appetite [Unknown]
  - Dizziness [Not Recovered/Not Resolved]
  - Epistaxis [Not Recovered/Not Resolved]
  - Hypertension [Not Recovered/Not Resolved]
  - Arteriovenous fistula site complication [Not Recovered/Not Resolved]
  - Dialysis related complication [Not Recovered/Not Resolved]
  - Complex regional pain syndrome [Unknown]
  - Intentional product misuse [Unknown]
  - Malnutrition [Unknown]
  - Malaise [Unknown]

NARRATIVE: CASE EVENT DATE: 20231001
